FAERS Safety Report 7969357 (Version 2)
Quarter: 2013Q4

REPORT INFORMATION
  Report Type: Spontaneous
  Country: CA (occurrence: CA)
  Receive Date: 20110601
  Receipt Date: 20131204
  Transmission Date: 20140711
  Serious: Yes (Other)
  Sender: FDA-Public Use
  Company Number: CA-ROCHE-779597

PATIENT
  Age: 45 Year
  Sex: Male

DRUGS (2)
  1. NAPROXEN [Suspect]
     Indication: PRODUCT USED FOR UNKNOWN INDICATION
     Route: 065
  2. CIMETIDINE [Suspect]
     Indication: PRODUCT USED FOR UNKNOWN INDICATION
     Route: 065

REACTIONS (8)
  - Chills [Unknown]
  - Leukocyturia [Unknown]
  - Nausea [Unknown]
  - Nephritis allergic [Unknown]
  - Pyelonephritis acute [Unknown]
  - Pyrexia [Unknown]
  - Pyuria [Unknown]
  - Tubulointerstitial nephritis [Unknown]
